FAERS Safety Report 7974496-2 (Version None)
Quarter: 2011Q4

REPORT INFORMATION
  Report Type: 
  Country: None (occurrence: None)
  Receive Date: 20111213
  Receipt Date: 20111209
  Transmission Date: 20120403
  Serious: Yes (Life-Threatening)
  Sender: FDA-Public Use
  Company Number: CHPA2011US017828

PATIENT
  Age: 59 Year
  Sex: Female

DRUGS (4)
  1. KLONOPIN [Concomitant]
  2. ATENOLOL [Concomitant]
     Indication: HYPERTENSION
  3. VALIUM [Concomitant]
  4. BENEFIBER SUGAR FREE [Suspect]
     Indication: MEDICAL DIET
     Dosage: 3 DF, QD
     Route: 048
     Dates: start: 20110101

REACTIONS (5)
  - HYPOTENSION [None]
  - URINARY TRACT INFECTION [None]
  - PYREXIA [None]
  - UROSEPSIS [None]
  - OFF LABEL USE [None]
